FAERS Safety Report 11329094 (Version 1)
Quarter: 2015Q3

REPORT INFORMATION
  Report Type: Spontaneous
  Country: US (occurrence: ZM)
  Receive Date: 20150802
  Receipt Date: 20150802
  Transmission Date: 20151125
  Serious: Yes (Other)
  Sender: FDA-Public Use
  Company Number: US-JNJFOC-20150717342

PATIENT

DRUGS (1)
  1. PETROLEUM JELLY [Suspect]
     Active Substance: PETROLATUM
     Indication: THERAPEUTIC SKIN CARE TOPICAL
     Route: 061

REACTIONS (4)
  - Rash [Unknown]
  - Skin infection [Unknown]
  - Wrong technique in product usage process [Unknown]
  - Bullous impetigo [Unknown]
